FAERS Safety Report 4523924-3 (Version None)
Quarter: 2004Q4

REPORT INFORMATION
  Report Type: 
  Country: None (occurrence: None)
  Receive Date: 20041209
  Receipt Date: 20041124
  Transmission Date: 20050328
  Serious: Yes (Hospitalization)
  Sender: FDA-Public Use
  Company Number: 2004BI000243

PATIENT
  Age: 49 Year
  Sex: Female
  Weight: 101.6057 kg

DRUGS (1)
  1. AVONEX [Suspect]
     Indication: MULTIPLE SCLEROSIS
     Dosage: 30 UG; QW; IM
     Route: 030
     Dates: start: 20000101, end: 20010901

REACTIONS (6)
  - AMNESIA [None]
  - CYST [None]
  - NEOPLASM [None]
  - NERVOUS SYSTEM DISORDER [None]
  - PRECANCEROUS CELLS PRESENT [None]
  - UPPER RESPIRATORY TRACT INFECTION [None]
